FAERS Safety Report 25118298 (Version 1)
Quarter: 2025Q1

REPORT INFORMATION
  Report Type: Other
  Country: JP (occurrence: JP)
  Receive Date: 20250325
  Receipt Date: 20250325
  Transmission Date: 20250408
  Serious: Yes (Other)
  Sender: DEXCEL
  Company Number: JP-DEXPHARM-2025-1411

PATIENT
  Age: 55 Year
  Sex: Male

DRUGS (2)
  1. DASATINIB [Interacting]
     Active Substance: DASATINIB
     Indication: Chronic myeloid leukaemia
  2. ESOMEPRAZOLE MAGNESIUM [Interacting]
     Active Substance: ESOMEPRAZOLE MAGNESIUM

REACTIONS (1)
  - Drug interaction [Unknown]
